FAERS Safety Report 6940734-8 (Version None)
Quarter: 2010Q3

REPORT INFORMATION
  Report Type: 
  Country: None (occurrence: None)
  Receive Date: 20100825
  Receipt Date: 20090917
  Transmission Date: 20110219
  Serious: No
  Sender: FDA-Public Use
  Company Number: US-MYLANLABS-2009S1016449

PATIENT
  Age: 51 Year
  Sex: Female

DRUGS (4)
  1. TEMAZEPAM [Suspect]
     Indication: INSOMNIA
     Route: 048
     Dates: start: 20080101
  2. TAPENTADOL [Concomitant]
     Indication: PAIN
     Route: 048
     Dates: start: 20090801
  3. FENTANYL CITRATE [Concomitant]
     Indication: PAIN
     Dosage: Q72HR
     Route: 062
  4. VICODIN [Concomitant]
     Indication: PAIN
     Route: 048

REACTIONS (1)
  - THERAPEUTIC RESPONSE UNEXPECTED [None]
